FAERS Safety Report 9523657 (Version 2)
Quarter: 2013Q3

REPORT INFORMATION
  Report Type: Spontaneous
  Country: AU (occurrence: AU)
  Receive Date: 20130913
  Receipt Date: 20130924
  Transmission Date: 20140515
  Serious: Yes (Death, Hospitalization)
  Sender: FDA-Public Use
  Company Number: PHHY2013AU101747

PATIENT
  Age: 70 Year
  Sex: 0

DRUGS (1)
  1. ACLASTA [Suspect]
     Dosage: 5 MG, UNK
     Route: 042

REACTIONS (4)
  - Death [Fatal]
  - Gastroenteritis [Unknown]
  - Dehydration [Unknown]
  - Diarrhoea [Unknown]
